FAERS Safety Report 6693400-0 (Version None)
Quarter: 2010Q2

REPORT INFORMATION
  Report Type: 
  Country: None (occurrence: None)
  Receive Date: 20100420
  Receipt Date: 20100409
  Transmission Date: 20101027
  Serious: Yes (Hospitalization, Other)
  Sender: FDA-Public Use
  Company Number: 2010EU000520

PATIENT
  Age: 28 Year
  Sex: Male

DRUGS (3)
  1. PROGRAF [Suspect]
     Indication: LUNG TRANSPLANT
     Dosage: 1.5 MG, BID, ORAL
     Route: 048
  2. CELLCEPT [Concomitant]
  3. PREDNISONE [Concomitant]

REACTIONS (10)
  - ASPERGILLOSIS [None]
  - HAEMODIALYSIS [None]
  - LUNG TRANSPLANT [None]
  - NEPHROLITHIASIS [None]
  - OFF LABEL USE [None]
  - OVERDOSE [None]
  - PYELONEPHRITIS [None]
  - RENAL CANCER [None]
  - RENAL FAILURE CHRONIC [None]
  - RENAL TRANSPLANT [None]
